FAERS Safety Report 21456512 (Version 1)
Quarter: 2022Q4

REPORT INFORMATION
  Report Type: Spontaneous
  Country: GB (occurrence: GB)
  Receive Date: 20221014
  Receipt Date: 20221014
  Transmission Date: 20230112
  Serious: Yes (Other)
  Sender: FDA-Public Use
  Company Number: GB-MHRA-MED-202210031817478700-CNDYS

PATIENT
  Age: 86 Year
  Sex: Male

DRUGS (10)
  1. FUROSEMIDE [Suspect]
     Active Substance: FUROSEMIDE
     Indication: Left ventricular failure
     Dosage: 40 MILLIGRAM, ONCE A DAY
     Route: 065
     Dates: end: 20221003
  2. APIXABAN [Concomitant]
     Active Substance: APIXABAN
     Indication: Atrial fibrillation
     Dosage: UNK
     Route: 065
  3. ATORVASTATIN [Concomitant]
     Active Substance: ATORVASTATIN
     Indication: Myocardial ischaemia
     Dosage: UNK
     Route: 065
  4. BISOPROLOL [Concomitant]
     Active Substance: BISOPROLOL
     Indication: Cardiac failure chronic
     Dosage: UNK
     Route: 065
  5. CANDESARTAN [Concomitant]
     Active Substance: CANDESARTAN
     Indication: Left ventricular failure
     Dosage: UNK
     Route: 065
  6. DAPAGLIFLOZIN [Concomitant]
     Active Substance: DAPAGLIFLOZIN
     Indication: Cardiac failure chronic
     Dosage: UNK
     Route: 065
  7. DIGOXIN [Concomitant]
     Active Substance: DIGOXIN
     Indication: Cardiac failure chronic
     Dosage: UNK
     Route: 065
  8. EPLERENONE [Concomitant]
     Active Substance: EPLERENONE
     Indication: Cardiac failure chronic
     Dosage: UNK
     Route: 065
  9. LANSOPRAZOLE [Concomitant]
     Active Substance: LANSOPRAZOLE
     Indication: Product used for unknown indication
     Dosage: UNK
     Route: 065
  10. SOLIFENACIN [Concomitant]
     Active Substance: SOLIFENACIN
     Indication: Nocturia
     Dosage: UNK
     Route: 065

REACTIONS (1)
  - Deafness [Not Recovered/Not Resolved]

NARRATIVE: CASE EVENT DATE: 20220805
